FAERS Safety Report 6642150-5 (Version None)
Quarter: 2010Q1

REPORT INFORMATION
  Report Type: 
  Country: None (occurrence: None)
  Receive Date: 20100319
  Receipt Date: 20091118
  Transmission Date: 20100710
  Serious: Yes (Other)
  Sender: FDA-Public Use
  Company Number: US-BAYER-200917005BCC

PATIENT
  Age: 29 Year
  Sex: Male
  Weight: 82 kg

DRUGS (1)
  1. ALKA-SELTZER EFFERVESCENT NIGHT COLD [Suspect]
     Indication: COUGH
     Dosage: UNIT DOSE: 1 DF
     Route: 048

REACTIONS (4)
  - CONFUSIONAL STATE [None]
  - FEELING ABNORMAL [None]
  - HALLUCINATION [None]
  - HALLUCINATION, VISUAL [None]
